FAERS Safety Report 7774275-5 (Version None)
Quarter: 2011Q3

REPORT INFORMATION
  Report Type: 
  Country: None (occurrence: None)
  Receive Date: 20110920
  Receipt Date: 20110913
  Transmission Date: 20111222
  Serious: Yes (Other)
  Sender: FDA-Public Use
  Company Number: 2011SP034368

PATIENT
  Age: 22 Year
  Sex: Female
  Weight: 51.4833 kg

DRUGS (1)
  1. IMPLANON [Suspect]
     Indication: PRODUCT USED FOR UNKNOWN INDICATION
     Dates: start: 20080101, end: 20110721

REACTIONS (1)
  - ACUTE MYELOID LEUKAEMIA [None]
